FAERS Safety Report 8054938-7 (Version None)
Quarter: 2012Q1

REPORT INFORMATION
  Report Type: 
  Country: None (occurrence: None)
  Receive Date: 20120119
  Receipt Date: 20120109
  Transmission Date: 20120608
  Serious: Yes (Hospitalization)
  Sender: FDA-Public Use
  Company Number: US-BAYER-2011-032322

PATIENT
  Age: 29 Year
  Sex: Female
  Weight: 149.66 kg

DRUGS (12)
  1. YAZ [Suspect]
     Indication: CONTRACEPTION
     Dosage: UNK
     Dates: start: 20090201, end: 20090801
  2. ORTHO TRI-CYCLEN [Concomitant]
     Dosage: 0.035 MG, QD
     Route: 048
  3. DAYPRO [Concomitant]
     Indication: INFLAMMATION
     Dosage: 800 MG, BID
     Route: 048
  4. DITROPAN [Concomitant]
     Dosage: 20 MG, UNK
     Route: 048
  5. WELLBUTRIN SR [Concomitant]
     Dosage: 150 MG, BID
  6. YAZ [Suspect]
     Indication: PREMENSTRUAL SYNDROME
  7. MIDRIN [Concomitant]
     Indication: HEADACHE
     Route: 048
  8. LAMISIL [Concomitant]
     Dosage: 250 MG, UNK
     Route: 048
  9. LISINOPRIL AND HYDROCHLOROTHIAZIDE [Concomitant]
     Route: 048
  10. INDAPAMIDE [Concomitant]
     Indication: SWELLING
     Dosage: 2.5 MG, PRN
     Route: 048
  11. TOPAMAX [Concomitant]
     Dosage: 50 MG, BID
     Route: 048
  12. TOPAMAX [Concomitant]
     Route: 048

REACTIONS (5)
  - INJURY [None]
  - ANXIETY [None]
  - PULMONARY EMBOLISM [None]
  - EMOTIONAL DISTRESS [None]
  - PAIN [None]
